FAERS Safety Report 7391649-5 (Version None)
Quarter: 2011Q2

REPORT INFORMATION
  Report Type: 
  Country: None (occurrence: None)
  Receive Date: 20110404
  Receipt Date: 20110323
  Transmission Date: 20111010
  Serious: Yes (Other)
  Sender: FDA-Public Use
  Company Number: US-ELI_LILLY_AND_COMPANY-US201103006851

PATIENT
  Sex: Female

DRUGS (1)
  1. EFFIENT [Suspect]
     Indication: STENT PLACEMENT
     Dosage: 10 MG, UNK
     Dates: start: 20110315

REACTIONS (4)
  - BRAIN NEOPLASM [None]
  - VISUAL ACUITY REDUCED [None]
  - BALANCE DISORDER [None]
  - DIZZINESS [None]
